FAERS Safety Report 9316735 (Version 2)
Quarter: 2013Q3

REPORT INFORMATION
  Report Type: Spontaneous
  Country: IT (occurrence: IT)
  Receive Date: 20130530
  Receipt Date: 20130710
  Transmission Date: 20140515
  Serious: Yes (Hospitalization)
  Sender: FDA-Public Use
  Company Number: IT-NOVOPROD-378381

PATIENT
  Age: 80 Year
  Sex: Male

DRUGS (8)
  1. NOVONORM [Suspect]
     Indication: DIABETES MELLITUS
     Dosage: 1 TAB, QD
     Route: 048
     Dates: start: 20120604
  2. RAMIPRIL [Concomitant]
     Indication: HYPERTENSION
     Dosage: UNK
     Route: 065
  3. ALPRAZOLAM [Concomitant]
     Dosage: UNK
     Route: 065
  4. ATORVASTATINA [Concomitant]
     Dosage: UNK
     Route: 065
  5. TAPAZOLE [Concomitant]
     Dosage: UNK
     Route: 065
  6. CARDIOASPIRIN [Concomitant]
     Indication: MYOCARDIAL ISCHAEMIA
     Dosage: UNK
     Route: 065
  7. OMNIC [Concomitant]
     Indication: BENIGN PROSTATIC HYPERPLASIA
     Dosage: UNK
     Route: 065
  8. LASIX                              /00032601/ [Concomitant]
     Indication: HYPERTENSION
     Dosage: 250 MG, UNK
     Route: 048

REACTIONS (2)
  - Adverse drug reaction [Recovered/Resolved]
  - Hypoglycaemia [Recovered/Resolved]
